FAERS Safety Report 10048432 (Version 1)
Quarter: 2014Q1

REPORT INFORMATION
  Report Type: Spontaneous
  Country: US (occurrence: US)
  Receive Date: 20140331
  Receipt Date: 20140331
  Transmission Date: 20141002
  Serious: Yes (Hospitalization, Other)
  Sender: FDA-Public Use
  Company Number: US-ELI_LILLY_AND_COMPANY-US201403007700

PATIENT
  Age: 77 Year
  Sex: Female
  Weight: 89.3 kg

DRUGS (7)
  1. CYMBALTA [Suspect]
     Indication: OSTEOARTHRITIS
     Dosage: 30 MG, QD
     Route: 048
     Dates: start: 20130101, end: 20130901
  2. LORTAB                             /00607101/ [Suspect]
     Indication: OSTEOARTHRITIS
     Dosage: 7.5 MG, EVERY 6 HRS
     Route: 048
     Dates: start: 20130101, end: 20130901
  3. METAXALONE [Suspect]
     Indication: MUSCLE SPASMS
     Dosage: 800 MG, TID
     Route: 048
     Dates: start: 20130101, end: 20130901
  4. SYNTHROID [Concomitant]
     Indication: HYPOTHYROIDISM
     Dosage: UNK, UNKNOWN
     Route: 065
  5. CELEXA                             /00582602/ [Concomitant]
     Indication: DEPRESSION
     Dosage: UNK, UNKNOWN
     Route: 065
  6. PRAVASTATIN [Concomitant]
     Indication: DYSLIPIDAEMIA
     Dosage: UNK, UNKNOWN
     Route: 065
  7. LOZOL [Concomitant]
     Indication: HYPERTENSION
     Dosage: UNK, UNKNOWN
     Route: 065

REACTIONS (1)
  - Coma [Recovered/Resolved]
